FAERS Safety Report 17543710 (Version 1)
Quarter: 2020Q1

REPORT INFORMATION
  Report Type: Spontaneous
  Country: SE (occurrence: SE)
  Receive Date: 20200316
  Receipt Date: 20200316
  Transmission Date: 20200409
  Serious: Yes (Disabling, Other)
  Sender: FDA-Public Use
  Company Number: SE-TEVA-2020-SE-1199439

PATIENT
  Age: 42 Year
  Sex: Female
  Weight: 83 kg

DRUGS (1)
  1. GABAPENTIN. [Suspect]
     Active Substance: GABAPENTIN
     Indication: PAIN
     Dosage: DOSAGE 6 X 600 MG
     Dates: start: 201805

REACTIONS (4)
  - Indifference [Not Recovered/Not Resolved]
  - Disinhibition [Not Recovered/Not Resolved]
  - Gambling disorder [Not Recovered/Not Resolved]
  - Judgement impaired [Not Recovered/Not Resolved]

NARRATIVE: CASE EVENT DATE: 2018
